FAERS Safety Report 9167390 (Version 1)
Quarter: 2013Q1

REPORT INFORMATION
  Report Type: Report from Study
  Country: CA (occurrence: CA)
  Receive Date: 20130318
  Receipt Date: 20130318
  Transmission Date: 20140127
  Serious: Yes (Other)
  Sender: FDA-Public Use
  Company Number: CA-JNJFOC-20130302373

PATIENT
  Age: 50 Year
  Sex: Male
  Weight: 104 kg

DRUGS (13)
  1. REMICADE [Suspect]
     Indication: PSORIATIC ARTHROPATHY
     Route: 042
  2. METHOTREXATE [Concomitant]
     Route: 065
  3. MODULON [Concomitant]
     Route: 065
  4. LOSEC [Concomitant]
     Route: 065
  5. REACTINE [Concomitant]
     Route: 065
  6. OLMETEC [Concomitant]
     Route: 065
  7. FOLIC ACID [Concomitant]
     Route: 065
  8. INDAPAMIDE [Concomitant]
     Route: 065
  9. DILTIAZEM [Concomitant]
     Route: 065
  10. ALLOPURINOL [Concomitant]
     Route: 065
  11. NITROGLYCERINE [Concomitant]
     Dosage: AS NEEDED
     Route: 065
  12. METFORMIN [Concomitant]
     Route: 065
  13. TYLENOL [Concomitant]
     Dosage: EXTRA STRENGTH
     Route: 065

REACTIONS (1)
  - Large intestine polyp [Recovered/Resolved]
